FAERS Safety Report 24172411 (Version 1)
Quarter: 2024Q3

REPORT INFORMATION
  Report Type: Spontaneous
  Country: CA (occurrence: CA)
  Receive Date: 20240805
  Receipt Date: 20240805
  Transmission Date: 20241017
  Serious: Yes (Hospitalization, Other)
  Sender: JUBILANT
  Company Number: CA-JUBILANT PHARMA LTD-2024CA001109

PATIENT
  Age: 22 Year
  Sex: Male

DRUGS (6)
  1. QUETIAPINE FUMARATE [Suspect]
     Active Substance: QUETIAPINE FUMARATE
     Indication: Paranoia
     Dosage: 200 MG, ONCE PER DAY (BEDTIME)
     Route: 065
  2. QUETIAPINE FUMARATE [Suspect]
     Active Substance: QUETIAPINE FUMARATE
     Dosage: 100 MG, ONCE PER DAY (BEDTIME)
     Route: 065
  3. QUETIAPINE FUMARATE [Suspect]
     Active Substance: QUETIAPINE FUMARATE
     Dosage: 300 MG, ONCE PER DAY (BEDTIME)
     Route: 065
  4. OLANZAPINE [Suspect]
     Active Substance: OLANZAPINE
     Indication: Psychotic symptom
     Dosage: 2.5 MG, ONCE PER DAY
     Route: 065
  5. OLANZAPINE [Suspect]
     Active Substance: OLANZAPINE
     Indication: Anxiety
     Dosage: 1.25 MG, ONCE PER DAY
     Route: 065
  6. RISPERIDONE [Suspect]
     Active Substance: RISPERIDONE
     Indication: Psychotic symptom
     Dosage: UNK,  UNK
     Route: 065

REACTIONS (9)
  - Extrapyramidal disorder [Unknown]
  - Psychotic disorder [Unknown]
  - Dysarthria [Not Recovered/Not Resolved]
  - Dysphagia [Not Recovered/Not Resolved]
  - Bradykinesia [Not Recovered/Not Resolved]
  - Balance disorder [Not Recovered/Not Resolved]
  - Dysphonia [Unknown]
  - Anxiety [Unknown]
  - Paranoia [Unknown]

NARRATIVE: CASE EVENT DATE: 20190101
